FAERS Safety Report 4729301-4 (Version None)
Quarter: 2005Q3

REPORT INFORMATION
  Report Type: 
  Country: None (occurrence: None)
  Receive Date: 20050729
  Receipt Date: 20040927
  Transmission Date: 20060218
  Serious: No
  Sender: FDA-Public Use
  Company Number: US-GLAXOSMITHKLINE-A0527403A

PATIENT
  Sex: Female

DRUGS (12)
  1. IMITREX [Suspect]
     Indication: DRUG USE FOR UNKNOWN INDICATION
     Dosage: 25MG AS REQUIRED
     Route: 048
     Dates: start: 20040824
  2. IMITREX [Suspect]
     Route: 065
  3. OXYCODONE HCL [Concomitant]
     Route: 065
  4. TOPAMAX [Concomitant]
     Route: 065
  5. NEURONTIN [Concomitant]
  6. CLORAZEPATE DIPOTASSIUM [Concomitant]
  7. FOLIC ACID [Concomitant]
  8. MULTI-VITAMIN [Concomitant]
  9. B-12 [Concomitant]
  10. INTAL [Concomitant]
  11. AZMACORT [Concomitant]
     Route: 065
  12. ALBUTEROL [Concomitant]

REACTIONS (2)
  - DRUG INEFFECTIVE [None]
  - HEADACHE [None]
